FAERS Safety Report 4693087-2 (Version None)
Quarter: 2005Q2

REPORT INFORMATION
  Report Type: 
  Country: None (occurrence: None)
  Receive Date: 20050617
  Receipt Date: 20050528
  Transmission Date: 20051028
  Serious: Yes (Death, Hospitalization)
  Sender: FDA-Public Use
  Company Number: PHHO2005TH08513

PATIENT
  Age: 31 Year
  Sex: Male
  Weight: 48 kg

DRUGS (1)
  1. GLIVEC [Suspect]
     Indication: CHRONIC MYELOID LEUKAEMIA
     Dosage: 600 MG, QD
     Route: 048
     Dates: start: 20050326

REACTIONS (3)
  - DIARRHOEA [None]
  - PYREXIA [None]
  - SEPSIS [None]
